FAERS Safety Report 17553000 (Version 3)
Quarter: 2020Q3

REPORT INFORMATION
  Report Type: Report from Study
  Country: None (occurrence: US)
  Receive Date: 20200318
  Receipt Date: 20200804
  Transmission Date: 20201102
  Serious: Yes (Hospitalization, Other)
  Sender: FDA-Public Use
  Company Number: US-ABBVIE-20K-163-3319408-00

PATIENT
  Age: 70 Year
  Sex: Female
  Weight: 74.46 kg

DRUGS (5)
  1. ALBUTEROL. [Concomitant]
     Active Substance: ALBUTEROL
     Indication: LUNG DISORDER
     Dosage: SOLUTION
     Route: 055
  2. DILTIAZEM. [Concomitant]
     Active Substance: DILTIAZEM
     Indication: CARDIAC DISORDER
     Route: 048
     Dates: start: 201904
  3. VENCLEXTA [Suspect]
     Active Substance: VENETOCLAX
     Indication: CHRONIC LYMPHOCYTIC LEUKAEMIA
     Dosage: TAKE 4?100MG TABLETS (400MG TOTAL) BY MOUTH ONCE DAILY WITH FOOD AND WATER.
     Route: 048
     Dates: start: 20171025
  4. VENCLEXTA [Suspect]
     Active Substance: VENETOCLAX
     Indication: CHRONIC LYMPHOCYTIC LEUKAEMIA
     Dosage: ABOUT 2?3 YEARS AGO
     Route: 048
     Dates: start: 2016
  5. PREDNISONE. [Suspect]
     Active Substance: PREDNISONE
     Indication: PNEUMONIA
     Route: 065
     Dates: start: 201903

REACTIONS (20)
  - Pulmonary mycosis [Recovering/Resolving]
  - Lower respiratory tract infection bacterial [Not Recovered/Not Resolved]
  - Dizziness [Recovering/Resolving]
  - Dyspnoea [Recovered/Resolved]
  - Irritability [Not Recovered/Not Resolved]
  - Nasopharyngitis [Recovering/Resolving]
  - Sleep apnoea syndrome [Recovering/Resolving]
  - Cardiac disorder [Recovering/Resolving]
  - Pneumonia [Recovered/Resolved]
  - Sinus congestion [Recovering/Resolving]
  - Insomnia [Not Recovered/Not Resolved]
  - Swelling [Recovering/Resolving]
  - Macular degeneration [Not Recovered/Not Resolved]
  - Heart rate decreased [Recovering/Resolving]
  - Cardio-respiratory arrest [Recovered/Resolved]
  - Nasal congestion [Not Recovered/Not Resolved]
  - Fluid retention [Recovering/Resolving]
  - Weight increased [Not Recovered/Not Resolved]
  - Dyspnoea [Recovered/Resolved]
  - Hypersensitivity [Not Recovered/Not Resolved]

NARRATIVE: CASE EVENT DATE: 2017
